FAERS Safety Report 24560442 (Version 2)
Quarter: 2025Q1

REPORT INFORMATION
  Report Type: Spontaneous
  Country: US (occurrence: US)
  Receive Date: 20241029
  Receipt Date: 20250320
  Transmission Date: 20250409
  Serious: Yes (Death, Hospitalization, Other)
  Sender: BRISTOL-MYERS SQUIBB COMPANY
  Company Number: US-BRISTOL-MYERS SQUIBB COMPANY-2024-166417

PATIENT
  Age: 88 Year
  Sex: Male

DRUGS (17)
  1. ELIQUIS [Suspect]
     Active Substance: APIXABAN
     Indication: Atrial fibrillation
     Route: 048
     Dates: start: 20230718, end: 20240330
  2. ACORAMIDIS [Suspect]
     Active Substance: ACORAMIDIS
     Indication: Cardiac amyloidosis
     Dates: start: 20220609, end: 20240329
  3. LIPITOR [Concomitant]
     Active Substance: ATORVASTATIN CALCIUM
     Route: 048
     Dates: start: 20230612
  4. BUMEX [Concomitant]
     Active Substance: BUMETANIDE
     Dosage: BUMEX (BUMETANIDE) 2 MG WITH 1 MG ?(TOTAL DOSE OF 3 MG) QD PO
     Route: 048
  5. BUMEX [Concomitant]
     Active Substance: BUMETANIDE
     Route: 048
     Dates: start: 20230919
  6. COLACE [Concomitant]
     Active Substance: DOCUSATE SODIUM
     Route: 048
  7. ULORIC [Concomitant]
     Active Substance: FEBUXOSTAT
     Indication: Gout
     Route: 048
     Dates: start: 20240312
  8. PROSCAR [Concomitant]
     Active Substance: FINASTERIDE
     Indication: Benign prostatic hyperplasia
     Route: 048
     Dates: start: 20230615
  9. TYLENOL [Concomitant]
     Active Substance: ACETAMINOPHEN
     Dosage: 500 MG TO 1000 MG PRN
     Route: 048
  10. ULORIC [Concomitant]
     Active Substance: FEBUXOSTAT
     Indication: Gout
     Route: 048
     Dates: start: 20240312
  11. PROSCAR [Concomitant]
     Active Substance: FINASTERIDE
     Indication: Benign prostatic hyperplasia
     Route: 048
     Dates: start: 20230615
  12. ANTIVERT [Concomitant]
     Active Substance: MECLIZINE HYDROCHLORIDE
     Dosage: PRN
     Route: 048
     Dates: start: 20230214
  13. MIRALAX [Concomitant]
     Active Substance: POLYETHYLENE GLYCOL 3350
     Dosage: PRN
     Route: 048
     Dates: start: 20221207
  14. ALDACTONE [Concomitant]
     Active Substance: SPIRONOLACTONE
     Route: 048
     Dates: start: 20230622
  15. ULTRAM [Concomitant]
     Active Substance: TRAMADOL HYDROCHLORIDE
     Indication: Pain
     Dosage: PRN
     Dates: start: 20231128
  16. VITAMIN D NOS [Concomitant]
     Active Substance: CHOLECALCIFEROL\ERGOCALCIFEROL
     Dosage: (50,000 UNITS)
     Dates: start: 20231115
  17. LOKELMA [Concomitant]
     Active Substance: SODIUM ZIRCONIUM CYCLOSILICATE

REACTIONS (19)
  - Upper gastrointestinal haemorrhage [Fatal]
  - Confusional state [Not Recovered/Not Resolved]
  - Asthenia [Not Recovered/Not Resolved]
  - Hypophagia [Unknown]
  - Pelvic pain [Unknown]
  - Acute kidney injury [Fatal]
  - Hypoperfusion [Unknown]
  - Gait disturbance [Unknown]
  - Pain in extremity [Unknown]
  - Insomnia [Unknown]
  - Fall [Unknown]
  - Blood loss anaemia [Unknown]
  - Azotaemia [Unknown]
  - Metabolic acidosis [Unknown]
  - Troponin increased [Unknown]
  - Ecchymosis [Unknown]
  - Wound [Unknown]
  - Rash [Unknown]
  - Hypertransaminasaemia [Unknown]

NARRATIVE: CASE EVENT DATE: 20240101
